FAERS Safety Report 21077469 (Version 2)
Quarter: 2024Q1

REPORT INFORMATION
  Report Type: Spontaneous
  Country: US (occurrence: US)
  Receive Date: 20220713
  Receipt Date: 20240131
  Transmission Date: 20240410
  Serious: No
  Sender: FDA-Public Use
  Company Number: US-PFIZER INC-202200949555

PATIENT

DRUGS (1)
  1. PAXLOVID [Suspect]
     Active Substance: NIRMATRELVIR\RITONAVIR
     Indication: COVID-19 treatment
     Dosage: 3 DF, 2X/DAY

REACTIONS (2)
  - Urinary tract infection [Unknown]
  - Pain [Unknown]
